FAERS Safety Report 10552634 (Version 1)
Quarter: 2014Q4

REPORT INFORMATION
  Report Type: Report from Study
  Country: US (occurrence: US)
  Receive Date: 20141029
  Receipt Date: 20141029
  Transmission Date: 20150529
  Serious: Yes (Other)
  Sender: FDA-Public Use
  Company Number: US-ROXANE LABORATORIES, INC.-2014-BI-50803GD

PATIENT

DRUGS (12)
  1. MEXILETINE [Suspect]
     Active Substance: MEXILETINE
     Indication: ATRIOVENTRICULAR BLOCK SECOND DEGREE
  2. PROPRANOLOL [Suspect]
     Active Substance: PROPRANOLOL\PROPRANOLOL HYDROCHLORIDE
     Indication: TORSADE DE POINTES
     Route: 064
  3. PROPRANOLOL [Suspect]
     Active Substance: PROPRANOLOL\PROPRANOLOL HYDROCHLORIDE
     Indication: ATRIOVENTRICULAR BLOCK SECOND DEGREE
  4. MAGNESIUM [Suspect]
     Active Substance: MAGNESIUM
     Indication: ATRIOVENTRICULAR BLOCK SECOND DEGREE
  5. MAGNESIUM [Suspect]
     Active Substance: MAGNESIUM
     Indication: TORSADE DE POINTES
     Route: 064
  6. MEXILETINE [Suspect]
     Active Substance: MEXILETINE
     Indication: TORSADE DE POINTES
     Route: 064
  7. MEXILETINE [Suspect]
     Active Substance: MEXILETINE
     Indication: FOETAL ARRHYTHMIA
  8. PROPRANOLOL [Suspect]
     Active Substance: PROPRANOLOL\PROPRANOLOL HYDROCHLORIDE
     Indication: FOETAL ARRHYTHMIA
  9. LIDOCAINE. [Suspect]
     Active Substance: LIDOCAINE
     Indication: FOETAL ARRHYTHMIA
  10. LIDOCAINE. [Suspect]
     Active Substance: LIDOCAINE
     Indication: TORSADE DE POINTES
     Route: 064
  11. LIDOCAINE. [Suspect]
     Active Substance: LIDOCAINE
     Indication: ATRIOVENTRICULAR BLOCK SECOND DEGREE
  12. MAGNESIUM [Suspect]
     Active Substance: MAGNESIUM
     Indication: FOETAL ARRHYTHMIA

REACTIONS (1)
  - Premature baby [Unknown]
